FAERS Safety Report 15189429 (Version 3)
Quarter: 2019Q2

REPORT INFORMATION
  Report Type: Report from Study
  Country: US (occurrence: US)
  Receive Date: 20180724
  Receipt Date: 20190618
  Transmission Date: 20190711
  Serious: Yes (Other)
  Sender: FDA-Public Use
  Company Number: US-TESARO, INC-US-2018TSO03601

PATIENT
  Sex: Female

DRUGS (2)
  1. ZEJULA [Suspect]
     Active Substance: NIRAPARIB
     Indication: OVARIAN CANCER
     Dosage: 300 MG, QD
     Route: 048
     Dates: start: 20180514, end: 20180712
  2. ZEJULA [Suspect]
     Active Substance: NIRAPARIB
     Dosage: 200 MG, QD
     Route: 048

REACTIONS (13)
  - Fatigue [Not Recovered/Not Resolved]
  - Blood glucose increased [Unknown]
  - Mean cell haemoglobin increased [Unknown]
  - Nail discolouration [Not Recovered/Not Resolved]
  - Blood triglycerides increased [Unknown]
  - Haemangioma of liver [Unknown]
  - Mean cell volume increased [Unknown]
  - Anaemia [Not Recovered/Not Resolved]
  - Skin discolouration [Not Recovered/Not Resolved]
  - Blood alkaline phosphatase increased [Unknown]
  - Dehydration [Not Recovered/Not Resolved]
  - Splenic lesion [Unknown]
  - Lung infiltration [Unknown]
